FAERS Safety Report 4585700-5 (Version None)
Quarter: 2005Q1

REPORT INFORMATION
  Report Type: 
  Country: None (occurrence: None)
  Receive Date: 20050214
  Receipt Date: 20050204
  Transmission Date: 20050727
  Serious: Yes (Other)
  Sender: FDA-Public Use
  Company Number: 2005026980

PATIENT

DRUGS (2)
  1. CLINDAMYCIN HYDROCHLORIDE [Suspect]
     Indication: OSTEOMYELITIS
     Dosage: ORAL
     Route: 048
  2. CLINDA PHOSPHATE [Suspect]
     Indication: OSTEOMYELITIS
     Dosage: INTRAMUSCULAR
     Route: 030
     Dates: start: 20050203

REACTIONS (2)
  - DEAFNESS [None]
  - NAUSEA [None]
